FAERS Safety Report 13415085 (Version 1)
Quarter: 2017Q2

REPORT INFORMATION
  Report Type: Spontaneous
  Country: None (occurrence: RU)
  Receive Date: 20170406
  Receipt Date: 20170406
  Transmission Date: 20170830
  Serious: No
  Sender: FDA-Public Use
  Company Number: RU-B. BRAUN MEDICAL INC.-1065089

PATIENT
  Age: 39 Year
  Sex: Female

DRUGS (1)
  1. SODIUM CHLORIDE INJECTIONS USP 0264-7800-00 0264-7800-10 [Suspect]
     Active Substance: SODIUM CHLORIDE

REACTIONS (5)
  - Pruritus [Recovering/Resolving]
  - Blood pressure increased [Recovering/Resolving]
  - Hyperaemia [Recovering/Resolving]
  - Tachycardia [None]
  - Urticaria [Recovering/Resolving]
